FAERS Safety Report 15259701 (Version 1)
Quarter: 2018Q3

REPORT INFORMATION
  Report Type: Spontaneous
  Country: US (occurrence: US)
  Receive Date: 20180719
  Receipt Date: 20180719
  Transmission Date: 20181010
  Serious: No
  Sender: FDA-Public Use
  Company Number: None

PATIENT
  Age: 54 Year
  Sex: Male
  Weight: 95.7 kg

DRUGS (3)
  1. DEXAMETHASONE. [Suspect]
     Active Substance: DEXAMETHASONE
     Dates: end: 20170404
  2. LENALIDOMIDE (CC?5013) [Suspect]
     Active Substance: LENALIDOMIDE
     Dates: end: 20180717
  3. VELCADE [Suspect]
     Active Substance: BORTEZOMIB
     Dates: end: 20170307

REACTIONS (2)
  - Malignant melanoma [None]
  - Melanocytic naevus [None]

NARRATIVE: CASE EVENT DATE: 20180711
